FAERS Safety Report 15586008 (Version 3)
Quarter: 2020Q1

REPORT INFORMATION
  Report Type: Report from Study
  Country: AR (occurrence: AR)
  Receive Date: 20181105
  Receipt Date: 20200212
  Transmission Date: 20200409
  Serious: Yes (Hospitalization)
  Sender: FDA-Public Use
  Company Number: AR-ACTELION-A-CH2018-181168

PATIENT
  Age: 2 Year
  Sex: Female
  Weight: 12 kg

DRUGS (2)
  1. LEVETIRACETAM. [Concomitant]
     Active Substance: LEVETIRACETAM
  2. MIGLUSTAT. [Suspect]
     Active Substance: MIGLUSTAT
     Indication: NIEMANN-PICK DISEASE
     Dosage: 300 MG, QD
     Route: 048
     Dates: start: 20180501

REACTIONS (6)
  - Influenza [Unknown]
  - Irritability [Unknown]
  - Product supply issue [Unknown]
  - Nasopharyngitis [Unknown]
  - Seizure [Unknown]
  - Secretion discharge [Unknown]

NARRATIVE: CASE EVENT DATE: 201810
